FAERS Safety Report 14847709 (Version 2)
Quarter: 2018Q2

REPORT INFORMATION
  Report Type: Spontaneous
  Country: US (occurrence: US)
  Receive Date: 20180504
  Receipt Date: 20180614
  Transmission Date: 20180711
  Serious: Yes (Hospitalization, Other)
  Sender: FDA-Public Use
  Company Number: US-PFIZER INC-2018179372

PATIENT
  Age: 59 Year
  Sex: Male
  Weight: 78.47 kg

DRUGS (11)
  1. ALLOPURINOL. [Concomitant]
     Active Substance: ALLOPURINOL
     Indication: GOUT
     Dosage: 100 MG, 1X/DAY
     Route: 048
  2. TIKOSYN [Suspect]
     Active Substance: DOFETILIDE
     Indication: ATRIAL FIBRILLATION
     Dosage: 500 MCG, TWICE A DAY
     Route: 048
     Dates: start: 201512
  3. DIGOXIN. [Concomitant]
     Active Substance: DIGOXIN
     Indication: ATRIAL FIBRILLATION
     Dosage: 250 MCG, UNK
     Route: 048
     Dates: start: 201507, end: 201804
  4. SPIRONOLACTONE. [Concomitant]
     Active Substance: SPIRONOLACTONE
     Indication: HYPERTENSION
     Dosage: 50 MG, DAILY (IN THE MORNING)
     Route: 048
     Dates: start: 2015
  5. BENAZEPRIL [Concomitant]
     Active Substance: BENAZEPRIL HYDROCHLORIDE
     Indication: HYPERTENSION
     Dosage: 40 MG, 2X/DAY(20 MG TABLET 2 TABLETS TWO TIMES A DAY MORNING AND EVENING)
     Route: 048
  6. SPIRONOLACTONE. [Concomitant]
     Active Substance: SPIRONOLACTONE
     Indication: ATRIAL FIBRILLATION
  7. TIKOSYN [Suspect]
     Active Substance: DOFETILIDE
     Dosage: 500 MCG, TWICE A DAY
     Route: 048
  8. DIGOXIN. [Concomitant]
     Active Substance: DIGOXIN
     Dosage: 125 MCG, ONCE A DAY
     Route: 048
     Dates: start: 201804
  9. MAGNESIUM [Concomitant]
     Active Substance: MAGNESIUM
     Indication: CARDIAC DISORDER
     Dosage: 192 MG, 1X/DAY(64 MG TABLET 3 ONCE A DAY)
     Route: 048
     Dates: start: 201507
  10. METOPROLOL. [Concomitant]
     Active Substance: METOPROLOL
     Indication: HYPERTENSION
     Dosage: 25 MG, TWICE A DAY
     Route: 048
     Dates: start: 2000, end: 201804
  11. ELIQUIS [Concomitant]
     Active Substance: APIXABAN
     Indication: CORONARY ARTERY THROMBOSIS
     Dosage: 5 MG, 2X/DAY
     Route: 048
     Dates: start: 201507

REACTIONS (9)
  - Diverticulitis [Unknown]
  - Renal impairment [Recovering/Resolving]
  - Infection [Unknown]
  - Cystitis [Not Recovered/Not Resolved]
  - Crohn^s disease [Unknown]
  - Enterovesical fistula [Not Recovered/Not Resolved]
  - Pyrexia [Unknown]
  - Glomerular filtration rate decreased [Unknown]
  - Weight decreased [Unknown]

NARRATIVE: CASE EVENT DATE: 2016
